FAERS Safety Report 8612825-7 (Version None)
Quarter: 2012Q3

REPORT INFORMATION
  Report Type: 
  Country: None (occurrence: None)
  Receive Date: 20120822
  Receipt Date: 20120125
  Transmission Date: 20120928
  Serious: No
  Sender: FDA-Public Use
  Company Number: US-ASTRAZENECA-2010SE58972

PATIENT
  Age: 75 Year
  Sex: Male

DRUGS (3)
  1. SYMBICORT [Suspect]
     Dosage: 160/4.5, 2 PUFFS BID
     Route: 055
  2. SYMBICORT [Suspect]
     Dosage: 160/4.5, 1 PUFFS BID
     Route: 055
  3. TOPROL-XL [Suspect]
     Route: 048

REACTIONS (8)
  - HYPERTENSION [None]
  - DIZZINESS [None]
  - HEADACHE [None]
  - HYPOTENSION [None]
  - IMPAIRED DRIVING ABILITY [None]
  - EMPHYSEMA [None]
  - AMNESIA [None]
  - INCORRECT DOSE ADMINISTERED [None]
